FAERS Safety Report 4507734-9 (Version None)
Quarter: 2004Q4

REPORT INFORMATION
  Report Type: 
  Country: None (occurrence: None)
  Receive Date: 20041123
  Receipt Date: 20040416
  Transmission Date: 20050328
  Serious: Yes (Death, Hospitalization)
  Sender: FDA-Public Use
  Company Number: JP-NOVOPROD-236432

PATIENT
  Age: 76 Year
  Sex: Male
  Weight: 55 kg

DRUGS (8)
  1. NOVOSEVEN [Suspect]
     Indication: ACQUIRED HAEMOPHILIA
     Dosage: 4.8 MG, AT 12:00
     Dates: start: 20040407, end: 20040407
  2. NOVOSEVEN [Suspect]
     Dosage: 4.8 MG, AT 15:00
     Dates: start: 20040407, end: 20040407
  3. NOVOSEVEN [Suspect]
     Dosage: 4.8 MG, AT 18:00
     Dates: start: 20040407, end: 20040407
  4. THROMBIN [Concomitant]
     Dosage: 5000 UNK, UNK
     Dates: start: 20040408, end: 20040408
  5. DOPAMINE HYDROCHLORIDE [Concomitant]
     Dosage: 400 ML, UNK
     Route: 042
     Dates: start: 20040411, end: 20040413
  6. DOBUTAMINE HCL [Concomitant]
     Dosage: 2A
     Route: 042
     Dates: start: 20040412, end: 20040413
  7. METOCLOPRAMIDE [Concomitant]
     Dosage: 1A
     Route: 042
     Dates: start: 20040411, end: 20040412
  8. METOCLOPRAMIDE [Concomitant]
     Dosage: 2A
     Route: 042
     Dates: start: 20040412, end: 20040412

REACTIONS (4)
  - BACK PAIN [None]
  - BLOOD PRESSURE DECREASED [None]
  - GINGIVAL BLEEDING [None]
  - HAEMOGLOBIN DECREASED [None]
